FAERS Safety Report 16613745 (Version 1)
Quarter: 2019Q3

REPORT INFORMATION
  Report Type: Spontaneous
  Country: US (occurrence: US)
  Receive Date: 20190723
  Receipt Date: 20190723
  Transmission Date: 20191004
  Serious: Yes (Hospitalization)
  Sender: FDA-Public Use
  Company Number: US-HORIZON-PRO-0131-2019

PATIENT
  Age: 28 Year
  Sex: Female

DRUGS (11)
  1. MIRALAX [Concomitant]
     Active Substance: POLYETHYLENE GLYCOL 3350
     Dosage: AS NEEDED
     Route: 048
  2. PROCYSBI [Suspect]
     Active Substance: CYSTEAMINE BITARTRATE
     Indication: CYSTINOSIS
     Dosage: 1275 MG TWO TIMES DAILY
     Route: 048
  3. CYSTEAMINE HCI 0.44% [Concomitant]
     Dosage: 1 DROP INTO BOTH EYES
  4. DRISDOL/VITAMIN D2 [Concomitant]
     Route: 048
  5. MAG-OX [Concomitant]
     Active Substance: MAGNESIUM OXIDE
     Route: 048
  6. MICROGESTIN 1/20 [Concomitant]
     Active Substance: ETHINYL ESTRADIOL\NORETHINDRONE ACETATE
     Dosage: 1-20 MG-?G TABLET
     Route: 048
  7. CEROVITE ADVANCED FORMULA [Concomitant]
     Route: 048
  8. RAPAMUNE [Concomitant]
     Active Substance: SIROLIMUS
     Route: 048
  9. ZOLOFT [Concomitant]
     Active Substance: SERTRALINE HYDROCHLORIDE
     Route: 048
  10. COLACE [Concomitant]
     Active Substance: DOCUSATE SODIUM
     Dosage: 2 CAPSULES DAILY
     Route: 048
  11. CARNITOR [Concomitant]
     Active Substance: LEVOCARNITINE
     Route: 048

REACTIONS (2)
  - Pyelonephritis [Recovered/Resolved]
  - Adenoviral haemorrhagic cystitis [Recovered/Resolved]

NARRATIVE: CASE EVENT DATE: 20190520
